FAERS Safety Report 4829560-3 (Version None)
Quarter: 2005Q4

REPORT INFORMATION
  Report Type: 
  Country: None (occurrence: None)
  Receive Date: 20051116
  Receipt Date: 20051110
  Transmission Date: 20060501
  Serious: Yes (Death)
  Sender: FDA-Public Use
  Company Number: US-JNJFOC-20051102999

PATIENT
  Sex: Female
  Weight: 40.82 kg

DRUGS (5)
  1. LEVAQUIN [Suspect]
     Indication: URINARY TRACT INFECTION
     Route: 042
  2. LEVAQUIN [Suspect]
     Route: 048
  3. LISINOPRIL [Concomitant]
     Indication: HYPERTENSION
  4. REMERON [Concomitant]
  5. CLINDAMYCIN [Concomitant]

REACTIONS (3)
  - MOUTH HAEMORRHAGE [None]
  - OEDEMA PERIPHERAL [None]
  - SEPTIC SHOCK [None]
